FAERS Safety Report 4976416-1 (Version None)
Quarter: 2006Q2

REPORT INFORMATION
  Report Type: 
  Country: None (occurrence: None)
  Receive Date: 20060412
  Receipt Date: 20060331
  Transmission Date: 20061013
  Serious: Yes (Other)
  Sender: FDA-Public Use
  Company Number: 2006045370

PATIENT
  Age: 53 Year
  Sex: Female
  Weight: 77.1115 kg

DRUGS (10)
  1. DIFLUCAN [Suspect]
     Indication: CANDIDIASIS
     Dosage: 200 MG (200 MG),
     Dates: start: 20050801
  2. NEXIUM [Concomitant]
  3. ZYRTEC [Concomitant]
  4. CLONAZEPAM [Concomitant]
  5. PROVIGIL [Concomitant]
  6. FLONASE [Concomitant]
  7. EFFEXOR [Concomitant]
  8. SYNTHROID [Concomitant]
  9. PROVERA [Concomitant]
  10. MENEST [Concomitant]

REACTIONS (10)
  - APNOEA [None]
  - DRUG INEFFECTIVE [None]
  - GASTROINTESTINAL CANDIDIASIS [None]
  - LARGE INTESTINAL ULCER [None]
  - MEDICATION RESIDUE [None]
  - NEUROMA [None]
  - OBSTRUCTIVE AIRWAYS DISORDER [None]
  - OESOPHAGEAL CANDIDIASIS [None]
  - STOMATITIS [None]
  - TONGUE DISORDER [None]
